FAERS Safety Report 4735610-5 (Version None)
Quarter: 2005Q3

REPORT INFORMATION
  Report Type: 
  Country: None (occurrence: None)
  Receive Date: 20050801
  Receipt Date: 20050801
  Transmission Date: 20060218
  Serious: Yes (Hospitalization)
  Sender: FDA-Public Use
  Company Number: None

PATIENT
  Age: 71 Year
  Sex: Male

DRUGS (2)
  1. ENALAPRIL [Suspect]
     Indication: DIABETES MELLITUS
     Dosage: 20 MG BID
  2. ENALAPRIL [Suspect]
     Indication: HYPERTENSION
     Dosage: 20 MG BID

REACTIONS (2)
  - DRUG HYPERSENSITIVITY [None]
  - SWELLING FACE [None]
